FAERS Safety Report 6823132-7 (Version None)
Quarter: 2010Q3

REPORT INFORMATION
  Report Type: 
  Country: None (occurrence: None)
  Receive Date: 20100708
  Receipt Date: 20100706
  Transmission Date: 20110219
  Serious: Yes (Other)
  Sender: FDA-Public Use
  Company Number: IN-BRISTOL-MYERS SQUIBB COMPANY-15167315

PATIENT
  Age: 50 Year
  Sex: Male
  Weight: 110 kg

DRUGS (4)
  1. ONGLYZA [Suspect]
     Route: 048
  2. CYCLOSPORINE [Suspect]
  3. PREDNISOLONE [Suspect]
  4. MYCOPHENOLATE MOFETIL [Suspect]

REACTIONS (5)
  - BLOOD CREATININE INCREASED [None]
  - DRUG LEVEL INCREASED [None]
  - GRAFT DYSFUNCTION [None]
  - HYPOGLYCAEMIA [None]
  - JAUNDICE [None]
